FAERS Safety Report 7176704 (Version 1)
Quarter: 2020Q3

REPORT INFORMATION
  Report Type: Report from Study
  Country: GB (occurrence: GB)
  Receive Date: 20091113
  Receipt Date: 20091113
  Transmission Date: 20201104
  Serious: Yes (Hospitalization)
  Sender: FDA-Public Use
  Company Number: GB-JNJFOC-20070501139

PATIENT
  Age: 44 Year
  Sex: Male
  Weight: 72.75 kg

DRUGS (16)
  1. GOLIMUMAB [Suspect]
     Active Substance: GOLIMUMAB
     Route: 058
  2. GOLIMUMAB [Suspect]
     Active Substance: GOLIMUMAB
     Route: 058
  3. GOLIMUMAB [Suspect]
     Active Substance: GOLIMUMAB
     Indication: PSORIATIC ARTHROPATHY
     Route: 058
  4. PARACETAMOL [Concomitant]
     Active Substance: ACETAMINOPHEN
     Dosage: 2 TABS
     Route: 048
  5. COCOIS SCALP [Concomitant]
     Route: 061
  6. GOLIMUMAB [Suspect]
     Active Substance: GOLIMUMAB
     Route: 058
  7. GOLIMUMAB [Suspect]
     Active Substance: GOLIMUMAB
     Route: 058
  8. GOLIMUMAB [Suspect]
     Active Substance: GOLIMUMAB
     Route: 058
  9. GOLIMUMAB [Suspect]
     Active Substance: GOLIMUMAB
     Route: 058
  10. GOLIMUMAB [Suspect]
     Active Substance: GOLIMUMAB
     Route: 058
  11. OMEPRAZOLE. [Concomitant]
     Active Substance: OMEPRAZOLE
     Route: 048
  12. MELOXICAM. [Concomitant]
     Active Substance: MELOXICAM
     Route: 048
  13. GOLIMUMAB [Suspect]
     Active Substance: GOLIMUMAB
     Route: 058
  14. GOLIMUMAB [Suspect]
     Active Substance: GOLIMUMAB
     Route: 058
  15. GOLIMUMAB [Suspect]
     Active Substance: GOLIMUMAB
     Route: 058
  16. GOLIMUMAB [Suspect]
     Active Substance: GOLIMUMAB
     Route: 058

REACTIONS (2)
  - Liver function test abnormal [Recovered/Resolved]
  - Abdominal pain upper [Recovered/Resolved]

NARRATIVE: CASE EVENT DATE: 20070421
